FAERS Safety Report 4519180-2 (Version None)
Quarter: 2004Q4

REPORT INFORMATION
  Report Type: 
  Country: None (occurrence: None)
  Receive Date: 20041201
  Receipt Date: 20041115
  Transmission Date: 20050328
  Serious: Yes (Death, Life-Threatening)
  Sender: FDA-Public Use
  Company Number: S04-FRA-06108-01

PATIENT
  Age: 90 Year
  Sex: Female
  Weight: 50 kg

DRUGS (14)
  1. CITALOPRAM HYDROBROMIDE [Suspect]
     Dosage: 10 MG BID PO
     Route: 046
     Dates: end: 20040710
  2. CORDARONE [Suspect]
     Dosage: 1 QD PO
     Route: 048
     Dates: end: 20040710
  3. COUMADIN [Suspect]
     Dosage: 2 MG QOD PO
     Route: 048
     Dates: end: 20040710
  4. COUMADIN [Suspect]
     Dosage: 1 MG QOD PO
     Route: 048
     Dates: end: 20040710
  5. PRAVASTATINE (PRAVASTATIN) [Suspect]
     Dosage: 20 MG QD PO
     Route: 048
     Dates: end: 20040710
  6. DIGOXIN [Concomitant]
  7. OMEPRAZOLE [Concomitant]
  8. VITAMIN K [Concomitant]
  9. HUMAN PROTHROMBIN COMPLEX [Concomitant]
  10. FUROSEMIDE [Concomitant]
  11. MANNITOL [Concomitant]
  12. BETAHISTINE [Concomitant]
  13. CLONAZEPAM [Concomitant]
  14. COVERSYL (PERINDOPRIL) [Concomitant]

REACTIONS (8)
  - CEREBRAL ARTERY STENOSIS [None]
  - COMA [None]
  - CONFUSIONAL STATE [None]
  - DRUG INTERACTION [None]
  - INTERNATIONAL NORMALISED RATIO INCREASED [None]
  - POLYTRAUMATISM [None]
  - SUBDURAL HAEMATOMA [None]
  - VERTIGO [None]
